FAERS Safety Report 18885056 (Version 1)
Quarter: 2021Q1

REPORT INFORMATION
  Report Type: Spontaneous
  Country: US (occurrence: US)
  Receive Date: 20210212
  Receipt Date: 20210212
  Transmission Date: 20210420
  Serious: Yes (Hospitalization)
  Sender: FDA-Public Use
  Company Number: None

PATIENT
  Age: 50 Year
  Sex: Male
  Weight: 74.8 kg

DRUGS (6)
  1. BAMLANIVIMAB. [Suspect]
     Active Substance: BAMLANIVIMAB
     Indication: COVID-19
     Dates: start: 20201218, end: 20201218
  2. ADDERALL XR [Concomitant]
     Active Substance: AMPHETAMINE ASPARTATE\AMPHETAMINE SULFATE\DEXTROAMPHETAMINE SACCHARATE\DEXTROAMPHETAMINE SULFATE
  3. ATORVASTATIN [Concomitant]
     Active Substance: ATORVASTATIN
  4. TRAZODONE [Concomitant]
     Active Substance: TRAZODONE HYDROCHLORIDE
  5. ALBUTEROL HFA INHALER [Concomitant]
     Active Substance: ALBUTEROL
  6. SYNTUZA [Concomitant]

REACTIONS (6)
  - Erythema [None]
  - Pain in extremity [None]
  - Peripheral swelling [None]
  - Hypersensitivity [None]
  - Arthralgia [None]
  - Rash pruritic [None]

NARRATIVE: CASE EVENT DATE: 20201219
